FAERS Safety Report 4956477-6 (Version None)
Quarter: 2006Q1

REPORT INFORMATION
  Report Type: 
  Country: None (occurrence: None)
  Receive Date: 20060329
  Receipt Date: 20060123
  Transmission Date: 20060701
  Serious: Yes (Death, Life-Threatening, Other)
  Sender: FDA-Public Use
  Company Number: JP-BRISTOL-MYERS SQUIBB COMPANY-13257522

PATIENT
  Age: 58 Year
  Sex: Male

DRUGS (4)
  1. TAXOL [Suspect]
     Indication: GASTRIC CANCER
     Route: 042
     Dates: start: 20051209, end: 20051209
  2. TEGAFUR [Suspect]
     Indication: GASTRIC CANCER
     Route: 048
     Dates: start: 20051028, end: 20051208
  3. OXYCODONE HCL [Concomitant]
     Route: 048
     Dates: start: 20051222, end: 20051229
  4. PAMIDRONATE DISODIUM [Concomitant]
     Route: 042
     Dates: start: 20051125, end: 20051228

REACTIONS (6)
  - DEPRESSED LEVEL OF CONSCIOUSNESS [None]
  - DISSEMINATED INTRAVASCULAR COAGULATION [None]
  - HAEMATEMESIS [None]
  - MALIGNANT NEOPLASM PROGRESSION [None]
  - RESPIRATORY ARREST [None]
  - THROMBOCYTOPENIA [None]
